FAERS Safety Report 4355349-8 (Version None)
Quarter: 2004Q2

REPORT INFORMATION
  Report Type: 
  Country: None (occurrence: None)
  Receive Date: 20040505
  Receipt Date: 20040420
  Transmission Date: 20050107
  Serious: Yes (Other)
  Sender: FDA-Public Use
  Company Number: 2004-0006914

PATIENT
  Age: 45 Year
  Sex: Female
  Weight: 78 kg

DRUGS (8)
  1. ADEFOVIR DIPIVOXIL (ADEFOVIR DIPIVOXIL) [Suspect]
     Indication: HEPATITIS B
     Dosage: SEE IMAGE
     Route: 048
     Dates: start: 20031113, end: 20031204
  2. ADEFOVIR DIPIVOXIL (ADEFOVIR DIPIVOXIL) [Suspect]
     Indication: HEPATITIS B
     Dosage: SEE IMAGE
     Route: 048
     Dates: start: 20031205
  3. THYROXINE (LEVOTHYROXINE SODIUM) [Concomitant]
  4. PHYTONADIONE [Concomitant]
  5. BACTRIM [Concomitant]
  6. (PANTOPRAZOLE (PANTOPRAZOLE) [Concomitant]
  7. LACTULOSE [Concomitant]
  8. CELEBREX [Concomitant]

REACTIONS (3)
  - ARTHRALGIA [None]
  - BLOOD CREATININE INCREASED [None]
  - MUCOSAL INFLAMMATION [None]
